FAERS Safety Report 13909809 (Version 1)
Quarter: 2017Q3

REPORT INFORMATION
  Report Type: Spontaneous
  Country: US (occurrence: US)
  Receive Date: 20170828
  Receipt Date: 20170828
  Transmission Date: 20171127
  Serious: Yes (Other)
  Sender: FDA-Public Use
  Company Number: US-CIPLA LTD.-2017US14582

PATIENT

DRUGS (3)
  1. CARBOPLATIN. [Suspect]
     Active Substance: CARBOPLATIN
     Indication: GLIOMA
     Dosage: UNK
     Route: 065
  2. VINCRISTINE [Suspect]
     Active Substance: VINCRISTINE
     Indication: GLIOMA
     Dosage: UNK
     Route: 065
  3. TEMOZOLMIDE [Suspect]
     Active Substance: TEMOZOLOMIDE
     Indication: GLIOMA
     Dosage: UNK
     Route: 065

REACTIONS (3)
  - VIth nerve paralysis [Unknown]
  - Pilomatrix carcinoma [Unknown]
  - Drug ineffective [Not Recovered/Not Resolved]
